FAERS Safety Report 7605424 (Version 3)
Quarter: 2013Q2

REPORT INFORMATION
  Report Type: Report from Study
  Country: DE (occurrence: DE)
  Receive Date: 20100924
  Receipt Date: 20130624
  Transmission Date: 20140414
  Serious: Yes (Hospitalization)
  Sender: FDA-Public Use
  Company Number: DE-MPIJNJ-2010-03408

PATIENT
  Sex: 0

DRUGS (21)
  1. VELCADE [Suspect]
     Indication: PLASMA CELL MYELOMA
     Dosage: 2.6 MG, UNK
     Route: 042
     Dates: start: 20091218, end: 20100525
  2. FORTECORTIN [Suspect]
     Indication: PLASMA CELL MYELOMA
     Dosage: 20 MG, UNK
     Route: 048
     Dates: start: 20091218, end: 20100526
  3. ENDOXAN [Suspect]
     Indication: PLASMA CELL MYELOMA
     Dosage: 50 MG, UNK
     Route: 048
     Dates: start: 20091218, end: 20100604
  4. BISOLICH COMP [Concomitant]
     Indication: HYPERTENSION
     Dosage: 10 MG, UNK
     Dates: start: 2006, end: 20100120
  5. BISOLICH COMP [Concomitant]
     Dosage: 2.5 MG, UNK
     Dates: start: 20100121, end: 20100225
  6. AMIODARON                          /00133102/ [Concomitant]
     Indication: ARRHYTHMIA
     Dosage: 200 MG, UNK
     Route: 048
     Dates: start: 200906, end: 20100330
  7. LYRICA [Concomitant]
     Dosage: 75 MG, UNK
     Route: 048
     Dates: start: 200909
  8. MARCUMAR [Concomitant]
     Indication: ARRHYTHMIA
     Dosage: 3 MG, UNK
     Route: 048
     Dates: start: 200910, end: 20091228
  9. MARCUMAR [Concomitant]
     Indication: PROPHYLAXIS
     Dosage: 3 UNK, UNK
     Route: 048
     Dates: start: 20100108
  10. IDEOS                              /00944201/ [Concomitant]
     Indication: HYPOCALCAEMIA
     Dosage: 1000 MG, UNK
     Route: 048
     Dates: start: 2006
  11. TORASEMID [Concomitant]
     Indication: HYPERTENSION
     Dosage: 10 MG, UNK
     Route: 048
     Dates: start: 200909, end: 20100121
  12. ALLOPURINOL [Concomitant]
     Indication: HYPOCALCAEMIA
     Dosage: 150 MG, UNK
     Route: 048
     Dates: start: 20091221
  13. ACICLOVIR [Concomitant]
     Indication: PROPHYLAXIS
     Dosage: 400 MG, UNK
     Route: 048
     Dates: start: 201001, end: 201007
  14. KONAKION [Concomitant]
     Indication: HAEMORRHAGE
     Dosage: 60 MG, UNK
     Dates: start: 20091229, end: 20091229
  15. BISOPROLOL [Concomitant]
     Indication: HYPERTENSION
     Dosage: 5 MG, UNK
     Route: 048
     Dates: start: 20100226, end: 20100808
  16. BISOPROLOL [Concomitant]
     Dosage: 5 UNK, UNK
     Route: 048
     Dates: start: 20100809
  17. FUROSEMID                          /00032601/ [Concomitant]
     Indication: OEDEMA PERIPHERAL
     Dosage: 40 MG, UNK
     Route: 048
     Dates: start: 20100517, end: 20100702
  18. PANTOPRAZOL [Concomitant]
     Indication: GASTRITIS PROPHYLAXIS
     Dosage: 40 MG, UNK
     Route: 048
     Dates: start: 20091218, end: 20100702
  19. NATAMYCIN [Concomitant]
     Indication: PROPHYLAXIS
     Dosage: 10 MG, UNK
     Route: 048
     Dates: start: 20091218, end: 20100702
  20. TRIMETHOPRIM [Concomitant]
     Indication: PROPHYLAXIS
     Dosage: UNK
     Dates: start: 20090718, end: 20100702
  21. HEPARIN [Concomitant]
     Indication: PROPHYLAXIS
     Dosage: 1000 ML, UNK
     Dates: start: 20091230, end: 201001

REACTIONS (3)
  - Abdominal pain [Recovered/Resolved]
  - Diarrhoea [Recovered/Resolved]
  - Hyperthyroidism [Not Recovered/Not Resolved]
